FAERS Safety Report 4980365-2 (Version None)
Quarter: 2006Q2

REPORT INFORMATION
  Report Type: 
  Country: None (occurrence: None)
  Receive Date: 20060421
  Receipt Date: 20060421
  Transmission Date: 20061013
  Serious: Yes (Other)
  Sender: FDA-Public Use
  Company Number: None

PATIENT
  Age: 73 Year
  Sex: Male
  Weight: 85 kg

DRUGS (3)
  1. EZETIMIBE [Suspect]
     Indication: BLOOD CHOLESTEROL
     Dosage: 10MG QD PO
     Route: 048
     Dates: start: 20031001, end: 20060101
  2. ATENOLOL [Concomitant]
  3. INDOMETHACIN [Concomitant]

REACTIONS (1)
  - MYALGIA [None]
